FAERS Safety Report 11067666 (Version 1)
Quarter: 2015Q2

REPORT INFORMATION
  Report Type: Spontaneous
  Country: US (occurrence: None)
  Receive Date: 20150424
  Receipt Date: 20150424
  Transmission Date: 20150821
  Serious: No
  Sender: FDA-Public Use
  Company Number: None

PATIENT
  Age: 84 Year
  Sex: Female
  Weight: 49.9 kg

DRUGS (12)
  1. SPIRONOLACTONE. [Concomitant]
     Active Substance: SPIRONOLACTONE
  2. VIT B [Concomitant]
     Active Substance: VITAMINS
  3. CARVEDILOL. [Concomitant]
     Active Substance: CARVEDILOL
  4. GABAPENTIN. [Suspect]
     Active Substance: GABAPENTIN
     Indication: HYPOAESTHESIA
     Dosage: 90 1 @ HS ?6 MO. AGO NEW RX ON 3/1/15
     Route: 048
  5. PRAVASTATIN [Concomitant]
     Active Substance: PRAVASTATIN\PRAVASTATIN SODIUM
  6. RAMIPRIL. [Concomitant]
     Active Substance: RAMIPRIL
  7. GABAPENTIN. [Suspect]
     Active Substance: GABAPENTIN
     Indication: NEURALGIA
     Dosage: 90 1 @ HS ?6 MO. AGO NEW RX ON 3/1/15
     Route: 048
  8. LEVOTHYROXINE [Concomitant]
     Active Substance: LEVOTHYROXINE
  9. ELIQUIS [Concomitant]
     Active Substance: APIXABAN
  10. COREG [Concomitant]
     Active Substance: CARVEDILOL
  11. TIMOLOL [Concomitant]
     Active Substance: TIMOLOL
  12. VITAMIN C [Concomitant]
     Active Substance: ASCORBIC ACID

REACTIONS (6)
  - Insomnia [None]
  - Product quality issue [None]
  - Product substitution issue [None]
  - Fatigue [None]
  - Restlessness [None]
  - Drug ineffective [None]

NARRATIVE: CASE EVENT DATE: 20150301
